FAERS Safety Report 6386308-1 (Version None)
Quarter: 2009Q4

REPORT INFORMATION
  Report Type: 
  Country: None (occurrence: None)
  Receive Date: 20091002
  Receipt Date: 20090918
  Transmission Date: 20100525
  Serious: Yes (Hospitalization, Other)
  Sender: FDA-Public Use
  Company Number: JP-PFIZER INC-2009267503

PATIENT
  Age: 41 Year

DRUGS (2)
  1. SALAZOPYRIN [Suspect]
     Indication: COLITIS ULCERATIVE
     Dosage: 1000 MG, 3X/DAY
     Route: 048
     Dates: start: 20090827, end: 20090909
  2. BIO THREE [Concomitant]
     Dosage: UNK
     Route: 048
     Dates: start: 20090827, end: 20090909

REACTIONS (4)
  - HEPATIC FUNCTION ABNORMAL [None]
  - PLATELET COUNT DECREASED [None]
  - PURPURA [None]
  - RASH [None]
